FAERS Safety Report 19191853 (Version 3)
Quarter: 2021Q2

REPORT INFORMATION
  Report Type: Spontaneous
  Country: ES (occurrence: ES)
  Receive Date: 20210428
  Receipt Date: 20210511
  Transmission Date: 20210717
  Serious: Yes (Hospitalization)
  Sender: FDA-Public Use
  Company Number: ES-INFO-001217

PATIENT
  Age: 21 Year
  Sex: Male
  Weight: 90 kg

DRUGS (7)
  1. CEFTAZIDIME. [Suspect]
     Active Substance: CEFTAZIDIME
     Indication: TELANGIECTASIA
     Dosage: REINTRODUCE CEFTAZIDIME 2 G TID ORAL
     Route: 042
     Dates: start: 2018
  2. CIPROFLOXACIN. [Concomitant]
     Active Substance: CIPROFLOXACIN
     Indication: TELANGIECTASIA
     Dosage: CIPROFLOXACIN 750 MG BID
     Route: 065
  3. CEFTRIAXONE. [Concomitant]
     Active Substance: CEFTRIAXONE
     Indication: TELANGIECTASIA
     Route: 065
  4. DEXAMETHASONE. [Concomitant]
     Active Substance: DEXAMETHASONE
     Indication: BRAIN ABSCESS
     Route: 065
  5. METRONIDAZOLE. [Suspect]
     Active Substance: METRONIDAZOLE
     Indication: TELANGIECTASIA
     Dosage: SWITCHED METRONIDAZOLE TO AN ORAL REGIMEN
     Route: 042
     Dates: start: 2018
  6. SULFAMETHOXAZOLE 800 MG, TRIMETHOPRIM 160 MG [Concomitant]
     Active Substance: SULFAMETHOXAZOLE\TRIMETHOPRIM
     Indication: BRAIN ABSCESS
     Route: 065
  7. LINEZOLID. [Concomitant]
     Active Substance: LINEZOLID
     Indication: BRAIN ABSCESS
     Dosage: SWITCHED LINEZOLID TO AN ORAL REGIMEN
     Route: 042

REACTIONS (1)
  - Liver disorder [Recovered/Resolved]

NARRATIVE: CASE EVENT DATE: 20180812
